FAERS Safety Report 11801314 (Version 3)
Quarter: 2019Q3

REPORT INFORMATION
  Report Type: Spontaneous
  Country: DE (occurrence: DE)
  Receive Date: 20151204
  Receipt Date: 20190705
  Transmission Date: 20191004
  Serious: Yes (Congenital Anomaly, Other)
  Sender: FDA-Public Use
  Company Number: DE-AUROBINDO-AUR-APL-2015-10935

PATIENT

DRUGS (6)
  1. BISOPROLOL [Suspect]
     Active Substance: BISOPROLOL
     Indication: HYPERTENSION
     Dosage: 5 MG, TWO TIMES A DAY (BID)
     Route: 064
     Dates: start: 20140525, end: 20150220
  2. ZYRTEC [Suspect]
     Active Substance: CETIRIZINE HYDROCHLORIDE
     Indication: HYPERSENSITIVITY
     Dosage: 10 MILLIGRAM, ONCE A DAY (QD)
     Route: 064
     Dates: start: 20140525, end: 20140928
  3. VALDOXAN [Concomitant]
     Active Substance: AGOMELATINE
     Indication: DEPRESSION
     Dosage: 50 MILLIGRAM, ONCE A DAY
     Route: 064
     Dates: start: 20140525, end: 20140612
  4. TRAUMEEL S [Concomitant]
     Active Substance: HOMEOPATHICS
     Indication: PAIN
     Dosage: UNK
     Route: 064
  5. FOLIC ACID. [Concomitant]
     Active Substance: FOLIC ACID
     Indication: PROPHYLAXIS OF NEURAL TUBE DEFECT
     Dosage: 0.8 MILLIGRAM, ONCE A DAY
     Route: 064
     Dates: start: 20140612, end: 20150220
  6. NOVAMINSULFON [Concomitant]
     Active Substance: METAMIZOLE
     Indication: FIBROMYALGIA
     Dosage: UNK
     Route: 064
     Dates: start: 20140525, end: 20140617

REACTIONS (6)
  - Congenital hydronephrosis [Not Recovered/Not Resolved]
  - Foetal heart rate deceleration abnormality [Unknown]
  - Foetal exposure during pregnancy [Not Recovered/Not Resolved]
  - Hydroureter [Not Recovered/Not Resolved]
  - Large for dates baby [Unknown]
  - Reflux nephropathy [Not Recovered/Not Resolved]

NARRATIVE: CASE EVENT DATE: 20140525
